FAERS Safety Report 21116392 (Version 11)
Quarter: 2024Q2

REPORT INFORMATION
  Report Type: Spontaneous
  Country: CA (occurrence: CA)
  Receive Date: 20220721
  Receipt Date: 20240502
  Transmission Date: 20240716
  Serious: Yes (Other)
  Sender: FDA-Public Use
  Company Number: CA-CELLTRION INC.-2022CA009565

PATIENT

DRUGS (17)
  1. INFLECTRA [Suspect]
     Active Substance: INFLIXIMAB-DYYB
     Indication: Colitis ulcerative
     Dosage: 5 MG/KG, WEEK 0, 2 , 6 THEN EVERY 8 WEEKS
     Route: 042
     Dates: start: 20220208
  2. INFLECTRA [Suspect]
     Active Substance: INFLIXIMAB-DYYB
     Dosage: 5 MG/KG, WEEK 0, 2 , 6 THEN EVERY 8 WEEKS
     Route: 042
     Dates: start: 20220325
  3. INFLECTRA [Suspect]
     Active Substance: INFLIXIMAB-DYYB
     Dosage: 5 MG/KG, WEEK 0, 2 , 6 THEN EVERY 8 WEEKS
     Route: 042
     Dates: start: 20220516
  4. INFLECTRA [Suspect]
     Active Substance: INFLIXIMAB-DYYB
     Dosage: 5 MG/KG, EVERY 4 WEEKS
     Route: 042
     Dates: start: 20220711
  5. INFLECTRA [Suspect]
     Active Substance: INFLIXIMAB-DYYB
     Dosage: 5 MG/KG, EVERY 4 WEEKS
     Route: 042
     Dates: start: 20220810, end: 20220810
  6. INFLECTRA [Suspect]
     Active Substance: INFLIXIMAB-DYYB
     Dosage: 10 MG/KG, EVERY 4 WEEKS
     Route: 042
     Dates: start: 20220908
  7. INFLECTRA [Suspect]
     Active Substance: INFLIXIMAB-DYYB
     Dosage: 10 MG/KG, EVERY 4 WEEKS
     Route: 042
     Dates: start: 20220908
  8. INFLECTRA [Suspect]
     Active Substance: INFLIXIMAB-DYYB
     Dosage: 10 MG/KG, RESCUE DOSE
     Route: 042
     Dates: start: 20220921, end: 20220921
  9. INFLECTRA [Suspect]
     Active Substance: INFLIXIMAB-DYYB
     Dosage: 10 MG/KG, RESCUE DOSE
     Route: 042
     Dates: start: 20220921
  10. INFLECTRA [Suspect]
     Active Substance: INFLIXIMAB-DYYB
     Dosage: 10 MG/KG, EVERY 4 WEEKS
     Route: 042
     Dates: start: 20221007
  11. INFLECTRA [Suspect]
     Active Substance: INFLIXIMAB-DYYB
     Dosage: 10 MG/KG, EVERY 4 WEEKS
     Route: 042
     Dates: start: 20231103
  12. INFLECTRA [Suspect]
     Active Substance: INFLIXIMAB-DYYB
     Dosage: 10 MG/KG (480MG) AFTER 6 WEEKS AND 6 DAYS, PRESCRIBED WAS EVERY 4 WEEKS
     Route: 042
     Dates: start: 20231221
  13. INFLECTRA [Suspect]
     Active Substance: INFLIXIMAB-DYYB
     Dosage: 10 MG/KG (480MG) AFTER 6 WEEKS AND 6 DAYS, PRESCRIBED WAS EVERY 4 WEEKS
     Route: 042
     Dates: start: 20231221
  14. INFLECTRA [Suspect]
     Active Substance: INFLIXIMAB-DYYB
     Dosage: 10 MG/KG, EVERY 4 WEEKS
     Route: 042
     Dates: start: 20240311
  15. INFLECTRA [Suspect]
     Active Substance: INFLIXIMAB-DYYB
     Dosage: 10 MG/KG, EVERY 6 WEEKS (500 MG)
     Route: 042
     Dates: start: 20240422
  16. PREDNISONE [Concomitant]
     Active Substance: PREDNISONE
     Dosage: UNK
  17. PREDNISONE [Concomitant]
     Active Substance: PREDNISONE
     Dosage: 1 DF DOSAGE NOT AVAILABLE
     Route: 065

REACTIONS (14)
  - Condition aggravated [Not Recovered/Not Resolved]
  - Headache [Recovered/Resolved]
  - Malaise [Recovered/Resolved]
  - Heart rate increased [Recovered/Resolved]
  - Respiratory rate increased [Recovered/Resolved]
  - Eye swelling [Recovered/Resolved]
  - Swelling of eyelid [Recovered/Resolved]
  - Nasal oedema [Recovered/Resolved]
  - Therapeutic response shortened [Unknown]
  - Weight decreased [Unknown]
  - Blood pressure diastolic increased [Unknown]
  - Cough [Not Recovered/Not Resolved]
  - Off label use [Unknown]
  - Inappropriate schedule of product administration [Unknown]

NARRATIVE: CASE EVENT DATE: 20220325
